FAERS Safety Report 10191238 (Version 1)
Quarter: 2014Q2

REPORT INFORMATION
  Report Type: Spontaneous
  Country: US (occurrence: None)
  Receive Date: 20140522
  Receipt Date: 20140522
  Transmission Date: 20141212
  Serious: Yes (Other)
  Sender: FDA-Public Use
  Company Number: None

PATIENT
  Sex: Female

DRUGS (1)
  1. SOLUMEDROL [Suspect]
     Indication: FLANK PAIN
     Dates: start: 20140501, end: 20140516

REACTIONS (2)
  - Flushing [None]
  - Erythema [None]
